FAERS Safety Report 8613522-4 (Version None)
Quarter: 2012Q3

REPORT INFORMATION
  Report Type: 
  Country: None (occurrence: None)
  Receive Date: 20120823
  Receipt Date: 20120807
  Transmission Date: 20120928
  Serious: Yes (Other)
  Sender: FDA-Public Use
  Company Number: JP-MERCK-2012SP010638

PATIENT

DRUGS (9)
  1. CANDESARTAN CILEXETIL [Concomitant]
     Indication: HYPERTENSION
     Dosage: 8 MG, QD,THE DIVIDED DOSE FREQUENCY IS UNCERTAIN
     Route: 048
  2. RIBAVIRIN [Suspect]
     Indication: HEPATITIS C
     Dosage: 400 MG, BID
     Route: 048
     Dates: start: 20110121, end: 20110203
  3. PEG-INTRON [Suspect]
     Indication: HEPATITIS C
     Dosage: 100 ?G, QW
     Route: 058
     Dates: start: 20110204
  4. RIBAVIRIN [Suspect]
     Dosage: 400 MG, BID
     Route: 048
     Dates: start: 20110204
  5. LORFENAMIN [Concomitant]
     Indication: PYREXIA
     Dosage: 120 MG, TIW
     Route: 048
     Dates: start: 20110123
  6. INTERFERON BETA NOS [Suspect]
     Indication: HEPATITIS C
     Dosage: 3 MILLION IU, BID,6 DAYS A WEEK
     Route: 041
     Dates: start: 20110121, end: 20110203
  7. NORVASC [Concomitant]
     Indication: HYPERTENSION
     Dosage: 5 MG, QD,THE DIVIDED DOSE FREQUENCY IS UNCERTAIN
     Route: 048
  8. URSO 250 [Concomitant]
     Indication: HEPATITIS C
     Dosage: 300 MG,QD, THE DIVIDED DOSE FREQUENCY IS UNCERTAIN
     Route: 048
     Dates: end: 20111222
  9. LORFENAMIN [Concomitant]
     Indication: ARTHRALGIA

REACTIONS (2)
  - NEUTROPHIL COUNT DECREASED [None]
  - WHITE BLOOD CELL COUNT DECREASED [None]
